FAERS Safety Report 6203257-X (Version None)
Quarter: 2009Q2

REPORT INFORMATION
  Report Type: 
  Country: None (occurrence: None)
  Receive Date: 20090522
  Receipt Date: 20090522
  Transmission Date: 20091009
  Serious: No
  Sender: FDA-Public Use
  Company Number: None

PATIENT
  Age: 62 Year
  Sex: Male
  Weight: 120.05 kg

DRUGS (1)
  1. CEPHALEXIN [Suspect]
     Dosage: 500 MG BID PO
     Route: 048
     Dates: start: 20090421, end: 20090430

REACTIONS (1)
  - DRUG ERUPTION [None]
